FAERS Safety Report 12859590 (Version 4)
Quarter: 2017Q3

REPORT INFORMATION
  Report Type: Report from Study
  Country: CA (occurrence: CA)
  Receive Date: 20161018
  Receipt Date: 20170807
  Transmission Date: 20171127
  Serious: Yes (Death, Hospitalization, Other)
  Sender: FDA-Public Use
  Company Number: CA-GILEAD-2016-0236993

PATIENT
  Age: 60 Year
  Sex: Female

DRUGS (1)
  1. LEDIPASVIR/SOFOSBUVIR [Suspect]
     Active Substance: LEDIPASVIR\SOFOSBUVIR
     Indication: HEPATITIS C VIRUS TEST POSITIVE
     Dosage: 1 DF, QD
     Route: 065
     Dates: start: 20160309, end: 20160808

REACTIONS (3)
  - Liver disorder [Fatal]
  - Ascites [Fatal]
  - Peritonitis bacterial [Fatal]

NARRATIVE: CASE EVENT DATE: 20160809
